FAERS Safety Report 26158088 (Version 1)
Quarter: 2025Q4

REPORT INFORMATION
  Report Type: Spontaneous
  Country: US (occurrence: None)
  Receive Date: 20251215
  Receipt Date: 20251215
  Transmission Date: 20260118
  Serious: Yes (Hospitalization)
  Sender: FDA-CTU
  Company Number: None

PATIENT
  Age: 74 Year
  Sex: Male

DRUGS (1)
  1. METOPROLOL SUCCINATE [Suspect]
     Active Substance: METOPROLOL SUCCINATE
     Indication: Hypertension
     Dosage: TAKE ONE TABLET BY MOUTH ONCE DAILY FOR HEART RATE
     Dates: start: 20250207, end: 20250905

REACTIONS (5)
  - Sinus bradycardia [None]
  - Respiratory failure [None]
  - Dysphonia [None]
  - Vision blurred [None]
  - Atrial fibrillation [None]

NARRATIVE: CASE EVENT DATE: 20250905
